FAERS Safety Report 12720219 (Version 1)
Quarter: 2016Q3

REPORT INFORMATION
  Report Type: Report from Study
  Country: US (occurrence: US)
  Receive Date: 20160907
  Receipt Date: 20160907
  Transmission Date: 20161109
  Serious: Yes (Other)
  Sender: FDA-Public Use
  Company Number: US-ROCHE-1821896

PATIENT

DRUGS (7)
  1. DOCETAXEL. [Suspect]
     Active Substance: DOCETAXEL
     Indication: ADENOCARCINOMA GASTRIC
     Dosage: DAY 1 AND 8 PLUS BEVACIZUMAB EVERY 21 DAYS FOR 2 CYCLES.
     Route: 065
  2. IRINOTECAN [Suspect]
     Active Substance: IRINOTECAN
     Indication: ADENOCARCINOMA GASTRIC
     Dosage: DAY 1 AND 8 PLUS BEVACIZUMAB EVERY 21 DAYS FOR 2 CYCLES.
     Route: 065
  3. BEVACIZUMAB [Suspect]
     Active Substance: BEVACIZUMAB
     Indication: ADENOCARCINOMA GASTRIC
     Dosage: DAY 1
     Route: 065
  4. EPIRUBICIN [Suspect]
     Active Substance: EPIRUBICIN
     Indication: ADENOCARCINOMA GASTRIC
     Dosage: DAY 1
     Route: 065
  5. CISPLATIN. [Suspect]
     Active Substance: CISPLATIN
     Indication: ADENOCARCINOMA GASTRIC
     Dosage: DAY 1
     Route: 065
  6. 5-FU [Suspect]
     Active Substance: FLUOROURACIL
     Indication: ADENOCARCINOMA GASTRIC
     Route: 042
  7. CAPECITABINE. [Suspect]
     Active Substance: CAPECITABINE
     Indication: ADENOCARCINOMA GASTRIC
     Dosage: EVERY 21 DAYS?DAY 1 AND 8 PLUS DOCETAXEL 30 MG/M2 AND IRINOTECAN 50 MG/MG2 EVERY 21 DAYS FOR 2 CYCLE
     Route: 048

REACTIONS (18)
  - Pain [Unknown]
  - Fatigue [Unknown]
  - Dehydration [Unknown]
  - Hypertension [Unknown]
  - Anaemia [Unknown]
  - Thrombocytopenia [Unknown]
  - Electrolyte imbalance [Unknown]
  - Liver function test increased [Unknown]
  - Neutropenia [Unknown]
  - Febrile neutropenia [Unknown]
  - Vomiting [Unknown]
  - Lymphopenia [Unknown]
  - Blood glucose abnormal [Unknown]
  - Gastrointestinal disorder [Unknown]
  - Diarrhoea [Unknown]
  - Mucosal inflammation [Unknown]
  - Decreased appetite [Unknown]
  - Leukopenia [Unknown]
